FAERS Safety Report 20387531 (Version 7)
Quarter: 2024Q1

REPORT INFORMATION
  Report Type: Spontaneous
  Country: US (occurrence: None)
  Receive Date: 20220127
  Receipt Date: 20240111
  Transmission Date: 20240409
  Serious: Yes (Hospitalization)
  Sender: FDA-Public Use
  Company Number: US-MDD US Operations-MDD202201-000051

PATIENT
  Age: 67 Year
  Sex: Male
  Weight: 74.84 kg

DRUGS (6)
  1. APOKYN [Suspect]
     Active Substance: APOMORPHINE HYDROCHLORIDE
     Indication: Parkinson^s disease
     Dosage: UPTO 0.5 ML
     Route: 058
     Dates: start: 2018
  2. APOKYN [Suspect]
     Active Substance: APOMORPHINE HYDROCHLORIDE
     Indication: On and off phenomenon
  3. APOKYN [Suspect]
     Active Substance: APOMORPHINE HYDROCHLORIDE
     Dosage: 3ML CARTRIDGE 1 EA CART (DO NOT EXCEED 2 DOSES PER 24 HOURS)
     Route: 058
  4. APOKYN [Suspect]
     Active Substance: APOMORPHINE HYDROCHLORIDE
  5. GOCOVRI [Concomitant]
     Active Substance: AMANTADINE
     Dosage: NOT PROVIDED
  6. AMANTADINE [Concomitant]
     Active Substance: AMANTADINE
     Dosage: NOT PROVIDED

REACTIONS (6)
  - Feeling abnormal [Unknown]
  - Asthenia [Not Recovered/Not Resolved]
  - Parkinson^s disease [Unknown]
  - Hallucination [Unknown]
  - Pain [Unknown]
  - Device breakage [Unknown]

NARRATIVE: CASE EVENT DATE: 20220114
